FAERS Safety Report 7808379-5 (Version None)
Quarter: 2011Q4

REPORT INFORMATION
  Report Type: 
  Country: None (occurrence: None)
  Receive Date: 20111011
  Receipt Date: 20111011
  Transmission Date: 20120403
  Serious: Yes (Other)
  Sender: FDA-Public Use
  Company Number: None

PATIENT
  Sex: Male

DRUGS (2)
  1. INCIVEK [Suspect]
     Indication: HEPATITIS C
     Dosage: 750MG TID ORAL
     Route: 048
     Dates: start: 20110922, end: 20111006
  2. RIBASPHERE [Suspect]
     Indication: HEPATITIS C
     Dosage: 400-600MG BID ORAL
     Route: 048
     Dates: start: 20110922, end: 20111006

REACTIONS (2)
  - APPLICATION SITE EROSION [None]
  - POST PROCEDURAL HAEMORRHAGE [None]
